FAERS Safety Report 17486266 (Version 2)
Quarter: 2020Q1

REPORT INFORMATION
  Report Type: Spontaneous
  Country: ES (occurrence: ES)
  Receive Date: 20200303
  Receipt Date: 20200311
  Transmission Date: 20200409
  Serious: Yes (Life-Threatening, Hospitalization, Other)
  Sender: FDA-Public Use
  Company Number: ES-ACTELION-A-CH2018-182437

PATIENT
  Age: 53 Year
  Sex: Female
  Weight: 67 kg

DRUGS (11)
  1. TADALAFIL. [Concomitant]
     Active Substance: TADALAFIL
     Indication: PULMONARY ARTERIAL HYPERTENSION
     Dosage: 20 MG, QD
     Dates: start: 201801
  2. TRACLEER [Suspect]
     Active Substance: BOSENTAN
     Indication: PULMONARY ARTERIAL HYPERTENSION
     Dosage: 62.5 MG, BID
     Route: 048
     Dates: start: 20180409, end: 20181019
  3. TRACLEER [Interacting]
     Active Substance: BOSENTAN
     Dosage: 125 MG, BID
     Route: 048
     Dates: start: 20180409, end: 20181008
  4. PIBRENTASVIR [Concomitant]
     Active Substance: PIBRENTASVIR
     Indication: HEPATITIS C
  5. REZOLSTA [Concomitant]
     Active Substance: COBICISTAT\DARUNAVIR ETHANOLATE
     Indication: HIV INFECTION
     Dosage: UNK
     Route: 048
     Dates: start: 20180501, end: 20181004
  6. RILPIVIRINE [Concomitant]
     Active Substance: RILPIVIRINE
     Indication: ANTIRETROVIRAL THERAPY
     Dosage: 25 MG, QD
     Dates: start: 201801, end: 201804
  7. ISENTRESS [Concomitant]
     Active Substance: RALTEGRAVIR POTASSIUM
     Indication: HIV INFECTION
     Dosage: UNK
     Route: 048
     Dates: start: 20180122, end: 20181004
  8. GLECAPREVIR [Concomitant]
     Active Substance: GLECAPREVIR
     Indication: HEPATITIS C
  9. COBICISTAT W/DARUNAVIR [Interacting]
     Active Substance: COBICISTAT\DARUNAVIR ETHANOLATE
     Indication: HIV INFECTION
     Dosage: 800/150 MG, QD
     Route: 048
     Dates: start: 20180501, end: 20181004
  10. RALTEGRAVIR. [Suspect]
     Active Substance: RALTEGRAVIR
     Indication: HIV INFECTION
     Dosage: 400 MG, BID
     Route: 048
     Dates: start: 20180122, end: 20181004
  11. LOPINAVIR W/RITONAVIR [Interacting]
     Active Substance: LOPINAVIR\RITONAVIR
     Indication: HIV INFECTION
     Dosage: 400/100 MG QD
     Route: 048
     Dates: start: 201801

REACTIONS (8)
  - Gene mutation [Recovered/Resolved]
  - Cardiac failure congestive [Recovered/Resolved]
  - Drug interaction [Recovered/Resolved]
  - Fluid retention [Recovered/Resolved]
  - Respiratory failure [Recovering/Resolving]
  - Virologic failure [Recovered/Resolved]
  - Toxicity to various agents [Recovered/Resolved]
  - Cardiac failure [Recovering/Resolving]

NARRATIVE: CASE EVENT DATE: 2018
